FAERS Safety Report 10021225 (Version 1)
Quarter: 2014Q1

REPORT INFORMATION
  Report Type: Spontaneous
  Country: SE (occurrence: SE)
  Receive Date: 20140319
  Receipt Date: 20140319
  Transmission Date: 20141002
  Serious: Yes (Other)
  Sender: FDA-Public Use
  Company Number: SE-ABBVIE-14P-150-1213573-00

PATIENT
  Sex: Female

DRUGS (37)
  1. ERGENYL [Suspect]
     Indication: PRODUCT USED FOR UNKNOWN INDICATION
  2. THERALEN [Suspect]
     Indication: PRODUCT USED FOR UNKNOWN INDICATION
  3. PROPAVAN [Suspect]
     Indication: PRODUCT USED FOR UNKNOWN INDICATION
  4. NOZINAN [Suspect]
     Indication: PRODUCT USED FOR UNKNOWN INDICATION
  5. ZYPREXA [Suspect]
     Indication: PRODUCT USED FOR UNKNOWN INDICATION
  6. SEROQUEL [Suspect]
     Indication: PRODUCT USED FOR UNKNOWN INDICATION
  7. LITHIONIT [Suspect]
     Indication: PRODUCT USED FOR UNKNOWN INDICATION
  8. OXASCAND [Suspect]
     Indication: PRODUCT USED FOR UNKNOWN INDICATION
  9. OXASCAND [Suspect]
     Indication: PRODUCT USED FOR UNKNOWN INDICATION
  10. ZUCLOPENTHIXOL ACETATE [Suspect]
     Indication: PRODUCT USED FOR UNKNOWN INDICATION
  11. ZUCLOPENTHIXOL ACETATE [Suspect]
     Indication: PRODUCT USED FOR UNKNOWN INDICATION
  12. FLUOXETINE [Suspect]
     Indication: PRODUCT USED FOR UNKNOWN INDICATION
  13. FLUOXETINE [Suspect]
     Indication: PRODUCT USED FOR UNKNOWN INDICATION
  14. CLOMETHIAZOLE EDISILATE [Suspect]
     Indication: PRODUCT USED FOR UNKNOWN INDICATION
  15. CLOMETHIAZOLE EDISILATE [Suspect]
     Indication: PRODUCT USED FOR UNKNOWN INDICATION
  16. BIPERIDEN HYDROCHLORIDE [Suspect]
     Indication: PRODUCT USED FOR UNKNOWN INDICATION
  17. BIPERIDEN HYDROCHLORIDE [Suspect]
     Indication: PRODUCT USED FOR UNKNOWN INDICATION
  18. IMOVANE [Suspect]
     Indication: PRODUCT USED FOR UNKNOWN INDICATION
  19. IMOVANE [Suspect]
     Indication: PRODUCT USED FOR UNKNOWN INDICATION
  20. STESOLID [Suspect]
     Indication: PRODUCT USED FOR UNKNOWN INDICATION
  21. STESOLID [Suspect]
     Indication: PRODUCT USED FOR UNKNOWN INDICATION
  22. SOBRIL [Suspect]
     Indication: PRODUCT USED FOR UNKNOWN INDICATION
  23. SOBRIL [Suspect]
     Indication: PRODUCT USED FOR UNKNOWN INDICATION
  24. PALIPERIDONE [Suspect]
     Indication: PRODUCT USED FOR UNKNOWN INDICATION
  25. PALIPERIDONE [Suspect]
     Indication: PRODUCT USED FOR UNKNOWN INDICATION
  26. PARGITAN [Suspect]
     Indication: PRODUCT USED FOR UNKNOWN INDICATION
  27. PARGITAN [Suspect]
     Indication: PRODUCT USED FOR UNKNOWN INDICATION
  28. OMEPRAZOLE [Suspect]
     Indication: PRODUCT USED FOR UNKNOWN INDICATION
  29. OMEPRAZOLE [Suspect]
     Indication: PRODUCT USED FOR UNKNOWN INDICATION
  30. QUETIAPINE [Suspect]
     Indication: PRODUCT USED FOR UNKNOWN INDICATION
  31. QUETIAPINE [Suspect]
     Indication: PRODUCT USED FOR UNKNOWN INDICATION
  32. ATARAX [Suspect]
     Indication: PRODUCT USED FOR UNKNOWN INDICATION
  33. ATARAX [Suspect]
     Indication: PRODUCT USED FOR UNKNOWN INDICATION
  34. CETIRIZINE HYDROCHLORIDE [Suspect]
     Indication: PRODUCT USED FOR UNKNOWN INDICATION
  35. CETIRIZINE HYDROCHLORIDE [Suspect]
     Indication: PRODUCT USED FOR UNKNOWN INDICATION
  36. TOPIRAMATE [Suspect]
     Indication: PRODUCT USED FOR UNKNOWN INDICATION
  37. TOPIRAMATE [Suspect]
     Indication: PRODUCT USED FOR UNKNOWN INDICATION

REACTIONS (19)
  - Ovarian germ cell cancer stage II [Unknown]
  - Amenorrhoea [Unknown]
  - Weight increased [Unknown]
  - Galactorrhoea [Unknown]
  - Tremor [Unknown]
  - Muscular weakness [Unknown]
  - Agitation [Unknown]
  - Dyspnoea [Unknown]
  - Blood prolactin increased [Unknown]
  - Palpitations [Unknown]
  - Aggression [Unknown]
  - Dyskinesia [Unknown]
  - Hyperhidrosis [Unknown]
  - Abdominal pain [Unknown]
  - Dysuria [Unknown]
  - Swelling [Unknown]
  - Muscle spasms [Unknown]
  - Breast enlargement [Unknown]
  - Fatigue [Unknown]
